FAERS Safety Report 6401710-7 (Version None)
Quarter: 2009Q4

REPORT INFORMATION
  Report Type: 
  Country: None (occurrence: None)
  Receive Date: 20091009
  Receipt Date: 20091009
  Transmission Date: 20100525
  Serious: Yes (Death)
  Sender: FDA-Public Use
  Company Number: None

PATIENT
  Age: 43 Year
  Sex: Female
  Weight: 74 kg

DRUGS (4)
  1. COMBIVIR [Suspect]
     Indication: HIV INFECTION
     Dosage: 150/300 MG BID ORAL
     Route: 048
     Dates: start: 20060623, end: 20090909
  2. SUSTIVA [Suspect]
     Indication: HIV INFECTION
     Dosage: 600 MG QPM ORAL
     Route: 048
     Dates: start: 20090623, end: 20090909
  3. BACTRIM [Concomitant]
  4. VITAMIN B COMPLEX CAP [Concomitant]

REACTIONS (8)
  - CONFUSIONAL STATE [None]
  - DEATH OF RELATIVE [None]
  - HEADACHE [None]
  - MENINGITIS [None]
  - STRESS [None]
  - TEARFULNESS [None]
  - UPPER RESPIRATORY TRACT INFECTION [None]
  - VIROLOGIC FAILURE [None]
